FAERS Safety Report 15973989 (Version 2)
Quarter: 2019Q1

REPORT INFORMATION
  Report Type: Report from Study
  Country: None (occurrence: US)
  Receive Date: 20190217
  Receipt Date: 20190226
  Transmission Date: 20190418
  Serious: Yes (Hospitalization, Other)
  Sender: FDA-Public Use
  Company Number: US-ABBVIE-19K-163-2665850-00

PATIENT
  Age: 52 Year
  Sex: Male
  Weight: 104.42 kg

DRUGS (2)
  1. MAVYRET [Suspect]
     Active Substance: GLECAPREVIR\PIBRENTASVIR
     Dosage: 100/40 MG TAB WEEKLY PACK 21
     Route: 048
     Dates: start: 20190210, end: 201902
  2. MAVYRET [Suspect]
     Active Substance: GLECAPREVIR\PIBRENTASVIR
     Indication: HEPATITIS C
     Dosage: 100/40 MG TAB WEEKLY PACK 21
     Route: 048
     Dates: start: 20181215, end: 20190208

REACTIONS (3)
  - Influenza [Recovered/Resolved]
  - Chronic obstructive pulmonary disease [Recovering/Resolving]
  - Oxygen saturation decreased [Recovering/Resolving]

NARRATIVE: CASE EVENT DATE: 20190208
